FAERS Safety Report 6894475-6 (Version None)
Quarter: 2010Q3

REPORT INFORMATION
  Report Type: 
  Country: None (occurrence: None)
  Receive Date: 20100802
  Receipt Date: 20100720
  Transmission Date: 20110219
  Serious: Yes (Life-Threatening, Other)
  Sender: FDA-Public Use
  Company Number: JP-PFIZER INC-2010090850

PATIENT
  Age: 57 Year
  Sex: Female
  Weight: 47 kg

DRUGS (8)
  1. XALATAN [Suspect]
     Indication: OCULAR HYPERTENSION
     Dosage: 1 GTT, 1X/DAY
     Route: 047
     Dates: start: 19990606, end: 19990913
  2. THEOPHYLLINE [Concomitant]
  3. FURSULTIAMINE [Concomitant]
  4. ETIZOLAM [Concomitant]
  5. PREDNISOLONE [Concomitant]
  6. ZOPICLONE [Concomitant]
  7. FLUTICASONE PROPIONATE [Concomitant]
     Dosage: UNK
     Dates: start: 19981212
  8. TULOBUTEROL [Concomitant]
     Dosage: UNK
     Dates: start: 19990911

REACTIONS (2)
  - CYANOSIS [None]
  - WHEEZING [None]
